FAERS Safety Report 5170770-6 (Version None)
Quarter: 2006Q4

REPORT INFORMATION
  Report Type: 
  Country: None (occurrence: None)
  Receive Date: 20060919
  Receipt Date: 20060612
  Transmission Date: 20070319
  Serious: No
  Sender: FDA-Public Use
  Company Number: BDI-008324

PATIENT
  Age: 50 Year
  Sex: Male
  Weight: 118 kg

DRUGS (4)
  1. MULTIHANCE [Suspect]
     Dosage: 25 ML ONCE IV
     Route: 042
     Dates: start: 20060610, end: 20060610
  2. TEGRETOL [Concomitant]
  3. TEMODAR [Concomitant]
  4. TOPAMAX [Concomitant]

REACTIONS (1)
  - HYPERSENSITIVITY [None]
